FAERS Safety Report 21447464 (Version 4)
Quarter: 2022Q4

REPORT INFORMATION
  Report Type: Spontaneous
  Country: US (occurrence: US)
  Receive Date: 20221012
  Receipt Date: 20221223
  Transmission Date: 20230113
  Serious: Yes (Other)
  Sender: FDA-Public Use
  Company Number: US-Albireo AB-2022ALB000282

PATIENT
  Age: 11 Year
  Sex: Male
  Weight: 25.3 kg

DRUGS (4)
  1. BYLVAY [Suspect]
     Active Substance: ODEVIXIBAT
     Indication: Progressive familial intrahepatic cholestasis
     Route: 048
     Dates: start: 20220902
  2. BYLVAY [Suspect]
     Active Substance: ODEVIXIBAT
     Route: 048
     Dates: start: 202109
  3. BYLVAY [Suspect]
     Active Substance: ODEVIXIBAT
     Route: 048
  4. RIFAMPIN [Suspect]
     Active Substance: RIFAMPIN
     Indication: Product used for unknown indication

REACTIONS (3)
  - Deafness [Unknown]
  - Blindness [Unknown]
  - Colour blindness [Unknown]
